FAERS Safety Report 23767013 (Version 2)
Quarter: 2024Q2

REPORT INFORMATION
  Report Type: Spontaneous
  Country: ZA (occurrence: ZA)
  Receive Date: 20240422
  Receipt Date: 20240429
  Transmission Date: 20240716
  Serious: Yes (Life-Threatening, Hospitalization, Other)
  Sender: FDA-Public Use
  Company Number: ZA-ALKEM LABORATORIES LIMITED-ZA-ALKEM-2024-07966

PATIENT
  Age: 3 Decade
  Sex: Male

DRUGS (2)
  1. AMLODIPINE BESYLATE [Suspect]
     Active Substance: AMLODIPINE BESYLATE
     Indication: Product used for unknown indication
     Dosage: UNK
     Route: 065
  2. RISPERIDONE [Suspect]
     Active Substance: RISPERIDONE
     Indication: Product used for unknown indication
     Dosage: UNK
     Route: 065

REACTIONS (4)
  - Shock [Recovered/Resolved]
  - Haemodynamic instability [Recovered/Resolved]
  - Drug level increased [Recovered/Resolved]
  - Overdose [Unknown]
